FAERS Safety Report 20496997 (Version 1)
Quarter: 2022Q1

REPORT INFORMATION
  Report Type: Spontaneous
  Country: ES (occurrence: ES)
  Receive Date: 20220221
  Receipt Date: 20220221
  Transmission Date: 20220423
  Serious: Yes (Other)
  Sender: FDA-Public Use
  Company Number: ES-SCILEX PHARMACEUTICALS INC.-2022SCX00004

PATIENT
  Age: 11 Month

DRUGS (1)
  1. LIDOCAINE [Suspect]
     Active Substance: LIDOCAINE
     Indication: Analgesic therapy
     Dosage: MEDIAN INFUSION RATE OF 3 ML/H
     Route: 058

REACTIONS (3)
  - Depressed level of consciousness [Recovered/Resolved]
  - Product administered to patient of inappropriate age [Recovered/Resolved]
  - Toxicity to various agents [Recovered/Resolved]
